FAERS Safety Report 19583262 (Version 1)
Quarter: 2021Q3

REPORT INFORMATION
  Report Type: Spontaneous
  Country: DE (occurrence: DE)
  Receive Date: 20210720
  Receipt Date: 20210720
  Transmission Date: 20211014
  Serious: Yes (Other)
  Sender: FDA-Public Use
  Company Number: DE-TEVA-2021-DE-1933273

PATIENT
  Age: 59 Year
  Sex: Female

DRUGS (5)
  1. MIRTAZAPIN [Suspect]
     Active Substance: MIRTAZAPINE
     Dosage: 45 MG, HAS BEEN TAKING FOR MONTHS
     Route: 065
     Dates: start: 20200713, end: 20200726
  2. NALOXONE, OXYCODONE [Concomitant]
     Active Substance: NALOXONE HYDROCHLORIDE\OXYCODONE HYDROCHLORIDE
     Dosage: 20/10, HAS BEEN TAKING FOR MONTHS
  3. NOVAMINSULFON [Concomitant]
     Active Substance: METAMIZOLE
     Dosage: 3000 MG, HAS BEEN TAKING FOR MONTHS
  4. SAROTEN [Suspect]
     Active Substance: AMITRIPTYLINE
     Dosage: 75 MG, HAS BEEN TAKING FOR MONTHS
     Route: 065
  5. MIRTAZAPIN [Suspect]
     Active Substance: MIRTAZAPINE
     Dosage: 30 MG, HAS BEEN TAKING FOR MONTHS
     Route: 065
     Dates: end: 20200712

REACTIONS (1)
  - Restless legs syndrome [Recovered/Resolved]

NARRATIVE: CASE EVENT DATE: 20200713
